FAERS Safety Report 5701075-X (Version None)
Quarter: 2008Q2

REPORT INFORMATION
  Report Type: 
  Country: None (occurrence: None)
  Receive Date: 20080410
  Receipt Date: 20080327
  Transmission Date: 20081010
  Serious: Yes (Other)
  Sender: FDA-Public Use
  Company Number: FI-AMGEN-US272019

PATIENT
  Age: 54 Year
  Sex: Male

DRUGS (2)
  1. ENBREL [Suspect]
     Indication: RHEUMATOID ARTHRITIS
     Route: 058
     Dates: start: 20060101, end: 20080201
  2. ENBREL [Suspect]
     Route: 058
     Dates: start: 20080201, end: 20080324

REACTIONS (3)
  - HYPOAESTHESIA [None]
  - HYPOAESTHESIA FACIAL [None]
  - INJECTION SITE DISCOMFORT [None]
